FAERS Safety Report 20953335 (Version 1)
Quarter: 2022Q2

REPORT INFORMATION
  Report Type: Report from Study
  Country: US (occurrence: US)
  Receive Date: 20220613
  Receipt Date: 20220613
  Transmission Date: 20220720
  Serious: No
  Sender: FDA-Public Use
  Company Number: US-NOVARTISTESTPH-NVSC2022US134513

PATIENT
  Sex: Female

DRUGS (3)
  1. ILARIS [Suspect]
     Active Substance: CANAKINUMAB
     Indication: Product used for unknown indication
     Dosage: UNK UNK, Q4W
     Route: 058
  2. ILARIS [Suspect]
     Active Substance: CANAKINUMAB
     Dosage: 0.7 ML
     Route: 065
  3. ILARIS [Suspect]
     Active Substance: CANAKINUMAB
     Dosage: 120 MG
     Route: 065
     Dates: start: 20220608

REACTIONS (3)
  - Pyrexia [Unknown]
  - Haemoglobin increased [Unknown]
  - Incorrect dose administered [Unknown]
